FAERS Safety Report 6221292-2 (Version None)
Quarter: 2009Q2

REPORT INFORMATION
  Report Type: 
  Country: None (occurrence: None)
  Receive Date: 20090610
  Receipt Date: 20090602
  Transmission Date: 20091009
  Serious: Yes (Death)
  Sender: FDA-Public Use
  Company Number: IT-BRISTOL-MYERS SQUIBB COMPANY-14648232

PATIENT

DRUGS (2)
  1. ATAZANAVIR SULFATE [Suspect]
     Indication: CHRONIC HEPATIC FAILURE
  2. ATAZANAVIR SULFATE [Suspect]
     Indication: ANTIRETROVIRAL THERAPY

REACTIONS (1)
  - CEREBRAL HAEMORRHAGE [None]
